FAERS Safety Report 17982886 (Version 3)
Quarter: 2020Q3

REPORT INFORMATION
  Report Type: Report from Study
  Country: US (occurrence: US)
  Receive Date: 20200706
  Receipt Date: 20200930
  Transmission Date: 20201103
  Serious: Yes (Death, Other)
  Sender: FDA-Public Use
  Company Number: NVSC2020US187281

PATIENT
  Age: 45 Year
  Sex: Female

DRUGS (1)
  1. KYMRIAH [Suspect]
     Active Substance: TISAGENLECLEUCEL
     Indication: DIFFUSE LARGE B-CELL LYMPHOMA
     Dosage: UNK
     Route: 065

REACTIONS (12)
  - Haemorrhage [Fatal]
  - Neutropenia [Not Recovered/Not Resolved]
  - Haemoglobin decreased [Unknown]
  - Pseudomonas infection [Unknown]
  - Thrombocytopenia [Not Recovered/Not Resolved]
  - Pyrexia [Recovered/Resolved]
  - Stenotrophomonas infection [Unknown]
  - Cytokine release syndrome [Recovered/Resolved]
  - Haematocrit decreased [Unknown]
  - Lymphocyte count decreased [Unknown]
  - Neurotoxicity [Not Recovered/Not Resolved]
  - Cytopenia [Unknown]
